FAERS Safety Report 7336109-2 (Version None)
Quarter: 2011Q1

REPORT INFORMATION
  Report Type: 
  Country: None (occurrence: None)
  Receive Date: 20110301
  Receipt Date: 20110301
  Transmission Date: 20110831
  Serious: No
  Sender: FDA-Public Use
  Company Number: None

PATIENT
  Age: 88 Year
  Sex: Male
  Weight: 32.9311 kg

DRUGS (3)
  1. POTASSIUM GUAIACOLSULFONATE [Suspect]
     Indication: NON-HODGKIN'S LYMPHOMA
     Dosage: 690 MG OTHER IV
     Dates: start: 20101015, end: 20101118
  2. POTASSIUM CITRATE [Suspect]
     Indication: NON-HODGKIN'S LYMPHOMA
     Dosage: 690 MG OTHER IV
     Dates: start: 20101015, end: 20101118
  3. MORPHINE [Suspect]
     Indication: NON-HODGKIN'S LYMPHOMA
     Dosage: 690 MG OTHER IV
     Dates: start: 20101015, end: 20101118

REACTIONS (5)
  - BRONCHOSPASM [None]
  - HYPERTENSION [None]
  - HYPOXIA [None]
  - INFUSION RELATED REACTION [None]
  - CHILLS [None]
